FAERS Safety Report 18676248 (Version 1)
Quarter: 2020Q4

REPORT INFORMATION
  Report Type: Spontaneous
  Country: DE (occurrence: DE)
  Receive Date: 20201229
  Receipt Date: 20201229
  Transmission Date: 20210114
  Serious: Yes (Life-Threatening, Hospitalization)
  Sender: FDA-Public Use
  Company Number: DE-TEVA-2020-DE-1862176

PATIENT
  Age: 70 Year
  Sex: Female

DRUGS (7)
  1. PREDNISOLON [Suspect]
     Active Substance: PREDNISOLONE
     Dosage: 2.5 MILLIGRAM DAILY; 1-0-0-0
  2. LEFLUNOMIDE. [Suspect]
     Active Substance: LEFLUNOMIDE
     Dosage: 20 MILLIGRAM DAILY; 1-0-0-0
  3. METHOTREXATE. [Suspect]
     Active Substance: METHOTREXATE
     Dosage: UNIT DOSE : 7.5 MG
  4. ZOLEDRONSAURE [Concomitant]
     Active Substance: ZOLEDRONIC ACID
     Dosage: 1X YEAR
  5. FOLSAURE [Concomitant]
     Active Substance: FOLIC ACID
     Dosage: UNIT DOSE : 5 MG
  6. CANDESARTAN CILEXETIL AND HYDROCHLOROTHIAZIDE [Concomitant]
     Active Substance: CANDESARTAN CILEXETIL\HYDROCHLOROTHIAZIDE
     Dosage: 2 DOSAGE FORMS DAILY; 1-0-1-0
  7. PANTOPRAZOL [Concomitant]
     Active Substance: PANTOPRAZOLE SODIUM
     Dosage: 20 MILLIGRAM DAILY; 1-0-0-0

REACTIONS (6)
  - Tachycardia [Unknown]
  - Gastrointestinal haemorrhage [Unknown]
  - Hypotension [Unknown]
  - Shock haemorrhagic [Unknown]
  - Haematochezia [Unknown]
  - Cough [Unknown]
